FAERS Safety Report 8984747 (Version 1)
Quarter: 2012Q4

REPORT INFORMATION
  Report Type: Spontaneous
  Country: US (occurrence: None)
  Receive Date: 20121214
  Receipt Date: 20121214
  Transmission Date: 20130627
  Serious: Yes (Other)
  Sender: FDA-Public Use
  Company Number: 2012P1066601

PATIENT
  Age: 59 Year
  Sex: Male

DRUGS (4)
  1. INFUMORPH [Suspect]
     Indication: SPINAL CORD INJURY
     Route: 037
  2. INFUMORPH [Suspect]
     Indication: SPASTICITY
     Route: 037
  3. LIORESAL (BACLOFEN) [Suspect]
     Route: 037
  4. LIORESAL (BACLOFEN) [Suspect]
     Route: 037

REACTIONS (10)
  - Granuloma [None]
  - Drug ineffective [None]
  - Pain [None]
  - Muscle spasms [None]
  - Muscle spasms [None]
  - Hallucination [None]
  - Spinal cord disorder [None]
  - Arachnoiditis [None]
  - Muscular weakness [None]
  - Tethered cord syndrome [None]
